FAERS Safety Report 26146958 (Version 1)
Quarter: 2025Q4

REPORT INFORMATION
  Report Type: Spontaneous
  Country: US (occurrence: US)
  Receive Date: 20251211
  Receipt Date: 20251211
  Transmission Date: 20260118
  Serious: No
  Sender: ABBVIE
  Company Number: US-ABBVIE-6584915

PATIENT
  Age: 30 Year
  Sex: Female

DRUGS (1)
  1. CARIPRAZINE [Suspect]
     Active Substance: CARIPRAZINE
     Indication: Major depression
     Route: 048

REACTIONS (2)
  - Amenorrhoea [Unknown]
  - Blood prolactin increased [Unknown]
